FAERS Safety Report 9490571 (Version 1)
Quarter: 2013Q3

REPORT INFORMATION
  Report Type: Spontaneous
  Country: US (occurrence: None)
  Receive Date: 20130828
  Receipt Date: 20130828
  Transmission Date: 20140515
  Serious: Yes (Death)
  Sender: FDA-Public Use
  Company Number: None

PATIENT
  Age: 46 Year
  Sex: Male
  Weight: 136.4 kg

DRUGS (12)
  1. PROTAMINE SULFATE [Suspect]
     Indication: PROCOAGULANT THERAPY
     Dosage: PROTAMINE IV INFUSION
     Route: 042
     Dates: start: 20130814
  2. CEFAZOLIN [Concomitant]
  3. PROPOFOL [Concomitant]
  4. FENTANYL [Concomitant]
  5. SUCCINYCHOLINE [Concomitant]
  6. VECURONIUM [Concomitant]
  7. HEPARIN [Concomitant]
  8. PROTAMINE [Concomitant]
  9. MILRINONE [Concomitant]
  10. NOREPINEPHRIN [Concomitant]
  11. NORMAL SALINE [Concomitant]
  12. EPINEPHRINE [Concomitant]

REACTIONS (3)
  - Electrocardiogram ST segment elevation [None]
  - Cardio-respiratory arrest [None]
  - Blood pressure decreased [None]
